FAERS Safety Report 12403460 (Version 2)
Quarter: 2016Q3

REPORT INFORMATION
  Report Type: Spontaneous
  Country: US (occurrence: US)
  Receive Date: 20160525
  Receipt Date: 20160810
  Transmission Date: 20161109
  Serious: No
  Sender: FDA-Public Use
  Company Number: US-NATCO PHARMA LIMITED-1052778

PATIENT
  Sex: Female

DRUGS (1)
  1. RIZATRIPTAN BENZOATE TABLETS, 5 MG AND 10 MG [Suspect]
     Active Substance: RIZATRIPTAN BENZOATE

REACTIONS (9)
  - Vision blurred [None]
  - Chest discomfort [None]
  - Nausea [Recovered/Resolved]
  - Burning sensation [Recovering/Resolving]
  - Dizziness [Recovered/Resolved]
  - Gait disturbance [None]
  - Coordination abnormal [None]
  - Blood pressure increased [None]
  - Paraesthesia [None]
